FAERS Safety Report 9180032 (Version 1)
Quarter: 2012Q4

REPORT INFORMATION
  Report Type: 
  Country: JP (occurrence: JP)
  Receive Date: 20121029
  Receipt Date: 20121029
  Transmission Date: 20130627
  Serious: Yes (Other)
  Sender: FDA-Public Use
  Company Number: JP-009507513-1206USA04672

PATIENT
  Age: 74 Year
  Sex: Female

DRUGS (3)
  1. ZETIA [Suspect]
     Dosage: 10 mg, qd
     Route: 048
     Dates: start: 201012, end: 201101
  2. VALTREX [Suspect]
     Indication: PROPHYLAXIS
     Route: 048
  3. GASTER [Suspect]
     Dosage: 2 DF, qd
     Route: 048

REACTIONS (4)
  - Leukopenia [Unknown]
  - Thrombocytopenia [Unknown]
  - Herpes zoster [Unknown]
  - Renal disorder [Recovering/Resolving]
